FAERS Safety Report 4299840-1 (Version None)
Quarter: 2004Q1

REPORT INFORMATION
  Report Type: 
  Country: None (occurrence: None)
  Receive Date: 20040126
  Receipt Date: 20031215
  Transmission Date: 20041129
  Serious: No
  Sender: FDA-Public Use
  Company Number: USA031152897

PATIENT
  Age: 60 Year
  Sex: Female
  Weight: 57 kg

DRUGS (3)
  1. STRATTERA [Suspect]
     Indication: ATTENTION DEFICIT/HYPERACTIVITY DISORDER
     Dosage: 25 MG/2 DAY
  2. CELEXA [Concomitant]
  3. WELLBUTRIN [Concomitant]

REACTIONS (4)
  - FLUSHING [None]
  - HYPERHIDROSIS [None]
  - HYPERTHERMIA [None]
  - MIDDLE INSOMNIA [None]
